FAERS Safety Report 9491320 (Version 1)
Quarter: 2013Q1

REPORT INFORMATION
  Report Type: Not Available
  Country: US (occurrence: US)
  Receive Date: 20120619
  Receipt Date: 20120619
  Transmission Date: 20140127
  Serious: Yes (Hospitalization)
  Sender: FDA-Public Use
  Company Number: US-LUNDBECK-DKLU1079461

PATIENT
  Age: 1 None
  Sex: Female

DRUGS (1)
  1. SABRIL (FOR ORAL SOLUTION) [Suspect]
     Indication: INFANTILE SPASMS
     Dosage: 1 1/2 PACKETS
     Route: 048
     Dates: start: 20110629

REACTIONS (1)
  - Convulsion [Recovered/Resolved]
